FAERS Safety Report 7605927-5 (Version None)
Quarter: 2011Q3

REPORT INFORMATION
  Report Type: 
  Country: None (occurrence: None)
  Receive Date: 20110713
  Receipt Date: 20110629
  Transmission Date: 20111222
  Serious: Yes (Other)
  Sender: FDA-Public Use
  Company Number: PHHY2011BR29787

PATIENT
  Sex: Male
  Weight: 61 kg

DRUGS (6)
  1. SIMVASTATIN [Concomitant]
     Indication: BLOOD CHOLESTEROL
     Dosage: 1 DF PER DAY
     Route: 048
  2. FLUOXETINE HCL [Concomitant]
     Dosage: UNK
     Route: 048
  3. CLONAZEPAM [Concomitant]
     Dosage: 1 DF PER DAY
     Route: 048
  4. DIOVAN HCT [Suspect]
     Indication: HYPERTENSION
     Dosage: 0.5 DF, 160 MG OF VALS  AND 12.5MG  OF HYDR, DAILY
     Route: 048
  5. DOMPERIDONE [Concomitant]
     Dosage: 1 DF DAILY
     Route: 048
     Dates: start: 20090101
  6. FOLIC ACID [Concomitant]
     Dosage: 1 DF DAILY
     Route: 048

REACTIONS (2)
  - FRONTOTEMPORAL DEMENTIA [None]
  - WRONG TECHNIQUE IN DRUG USAGE PROCESS [None]
